FAERS Safety Report 20455793 (Version 20)
Quarter: 2023Q4

REPORT INFORMATION
  Report Type: Spontaneous
  Country: US (occurrence: US)
  Receive Date: 20220210
  Receipt Date: 20231113
  Transmission Date: 20240110
  Serious: Yes (Hospitalization, Other)
  Sender: FDA-Public Use
  Company Number: US-PFIZER INC-2021086603

PATIENT
  Age: 75 Year
  Sex: Female
  Weight: 54.422 kg

DRUGS (4)
  1. IBRANCE [Suspect]
     Active Substance: PALBOCICLIB
     Indication: Breast cancer metastatic
     Dosage: 75 MG, CYCLIC (THREE WEEKS ON AND THREE WEEKS OFF)
  2. IBRANCE [Suspect]
     Active Substance: PALBOCICLIB
     Dosage: 75 MG, CYCLIC (EVERY 6 WEEKS)
  3. IBRANCE [Suspect]
     Active Substance: PALBOCICLIB
     Dosage: 75 MG ONCE A DAY (21 DAYS ON 21DAYS OFF)
     Route: 048
     Dates: start: 20170122, end: 20230203
  4. LETROZOLE [Concomitant]
     Active Substance: LETROZOLE
     Indication: Breast cancer
     Dosage: 2.5 MG, DAILY
     Dates: start: 20171018, end: 20230418

REACTIONS (24)
  - Dehydration [Recovered/Resolved]
  - Diarrhoea [Recovered/Resolved]
  - Hypertension [Recovered/Resolved]
  - Anxiety [Not Recovered/Not Resolved]
  - Nervousness [Not Recovered/Not Resolved]
  - Stress [Unknown]
  - Second primary malignancy [Recovered/Resolved]
  - Non-small cell lung cancer [Recovered/Resolved]
  - Colitis [Recovered/Resolved]
  - Pneumonia [Unknown]
  - Off label use [Unknown]
  - Spinal disorder [Unknown]
  - Disease progression [Unknown]
  - Neoplasm progression [Unknown]
  - Vertigo [Unknown]
  - Confusional state [Recovered/Resolved]
  - Fall [Unknown]
  - Blood sodium decreased [Unknown]
  - Blood potassium decreased [Unknown]
  - Feeling hot [Unknown]
  - Feeling abnormal [Unknown]
  - Fatigue [Unknown]
  - Skin lesion [Unknown]
  - Asthenia [Recovering/Resolving]

NARRATIVE: CASE EVENT DATE: 20171101
